FAERS Safety Report 20363535 (Version 2)
Quarter: 2022Q1

REPORT INFORMATION
  Report Type: Spontaneous
  Country: US (occurrence: None)
  Receive Date: 20220121
  Receipt Date: 20220124
  Transmission Date: 20220423
  Serious: Yes (Other)
  Sender: FDA-Public Use
  Company Number: 2022A023237

PATIENT
  Sex: Female
  Weight: 40.8 kg

DRUGS (1)
  1. NEXIUM [Suspect]
     Active Substance: ESOMEPRAZOLE MAGNESIUM
     Indication: Gastrooesophageal reflux disease
     Route: 048

REACTIONS (16)
  - Lupus-like syndrome [Unknown]
  - Weight decreased [Unknown]
  - Skin irritation [Unknown]
  - Erythema [Unknown]
  - Osteoporosis [Unknown]
  - Malaise [Unknown]
  - Antinuclear antibody positive [Unknown]
  - Dysphagia [Unknown]
  - Gastric polyps [Unknown]
  - Dysphonia [Unknown]
  - Hyperchlorhydria [Unknown]
  - Burning sensation [Unknown]
  - Condition aggravated [Unknown]
  - Cough [Unknown]
  - Vitamin B12 decreased [Unknown]
  - Histone antibody positive [Unknown]
